FAERS Safety Report 25703055 (Version 2)
Quarter: 2025Q4

REPORT INFORMATION
  Report Type: Spontaneous
  Country: EU (occurrence: EU)
  Receive Date: 20250819
  Receipt Date: 20251218
  Transmission Date: 20260117
  Serious: Yes (Hospitalization)
  Sender: CELLTRION
  Company Number: None

PATIENT

DRUGS (7)
  1. INFLIXIMAB [Suspect]
     Active Substance: INFLIXIMAB
     Indication: Colitis ulcerative
     Dosage: 400 MILLIGRAM EVERY 6 WEEKS
     Route: 042
     Dates: start: 20240626
  2. ADALIMUMAB [Suspect]
     Active Substance: ADALIMUMAB
     Indication: Colitis ulcerative
     Dosage: UNK
     Route: 058
     Dates: start: 202402, end: 20240626
  3. ADALIMUMAB [Suspect]
     Active Substance: ADALIMUMAB
  4. METHOTREXATE [Suspect]
     Active Substance: METHOTREXATE
     Indication: Colitis ulcerative
     Dosage: 10 MILLIGRAM, EVERY 1 WEEK
     Route: 048
     Dates: start: 20240626
  5. FOLIC ACID [Suspect]
     Active Substance: FOLIC ACID
     Indication: Colitis ulcerative
     Dosage: 5 MILLIGRAM, EVERY 1 WEEK
     Route: 048
     Dates: start: 20240626
  6. ASCORBIC ACID\FERROUS SULFATE [Suspect]
     Active Substance: ASCORBIC ACID\FERROUS SULFATE
     Indication: Colitis ulcerative
     Dosage: 2 DF, EVERY 1 DAY
     Route: 048
     Dates: start: 20240626
  7. HYDROXYZINE [Concomitant]
     Active Substance: HYDROXYZINE HYDROCHLORIDE
     Indication: Anxiety
     Dosage: 25 MILLIGRAM, EVERY 1 DAY
     Route: 048
     Dates: end: 20240809

REACTIONS (5)
  - Suicide attempt [Recovered/Resolved]
  - Anxiety [Recovering/Resolving]
  - Thymus disorder [Recovering/Resolving]
  - Psychotic disorder [Recovering/Resolving]
  - Intentional product use issue [Unknown]

NARRATIVE: CASE EVENT DATE: 20240701
